FAERS Safety Report 6677791-2 (Version None)
Quarter: 2010Q2

REPORT INFORMATION
  Report Type: 
  Country: None (occurrence: None)
  Receive Date: 20100409
  Receipt Date: 20100409
  Transmission Date: 20101027
  Serious: Yes (Life-Threatening, Other)
  Sender: FDA-Public Use
  Company Number: None

PATIENT
  Sex: Female
  Weight: 83.9154 kg

DRUGS (3)
  1. LOVASTATIN [Suspect]
     Indication: BLOOD CHOLESTEROL INCREASED
     Dosage: 20MG (X60) 1X DAY ORAL
     Route: 048
     Dates: start: 20100226, end: 20100315
  2. ERGOCALCIFEROL [Suspect]
     Indication: VITAMIN D DEFICIENCY
     Dosage: 50,000 IU (X12) 1X/WK ORAL
     Route: 048
     Dates: start: 20100307
  3. CALTRATE [Concomitant]

REACTIONS (12)
  - ABDOMINAL DISTENSION [None]
  - ABDOMINAL PAIN [None]
  - ARTHRALGIA [None]
  - CARDIAC FAILURE CONGESTIVE [None]
  - DRUG HYPERSENSITIVITY [None]
  - FEELING ABNORMAL [None]
  - GAIT DISTURBANCE [None]
  - HEADACHE [None]
  - ISCHAEMIC STROKE [None]
  - LETHARGY [None]
  - PSYCHOTIC DISORDER [None]
  - SOMNOLENCE [None]
